FAERS Safety Report 11402995 (Version 1)
Quarter: 2015Q3

REPORT INFORMATION
  Report Type: Spontaneous
  Country: US (occurrence: US)
  Receive Date: 20150821
  Receipt Date: 20150821
  Transmission Date: 20151125
  Serious: Yes (Hospitalization, Other)
  Sender: FDA-Public Use
  Company Number: US-ROCHE-1294880

PATIENT
  Sex: Female

DRUGS (1)
  1. PEGASYS [Suspect]
     Active Substance: PEGINTERFERON ALFA-2A
     Indication: CHRONIC HEPATITIS C
     Route: 065

REACTIONS (8)
  - Diabetic coma [Unknown]
  - Diabetes mellitus [Unknown]
  - Hepatic failure [Unknown]
  - Alopecia [Unknown]
  - Ascites [Unknown]
  - Transplant rejection [Unknown]
  - Peritonitis [Unknown]
  - Hypersensitivity [Unknown]
